FAERS Safety Report 21397810 (Version 1)
Quarter: 2022Q3

REPORT INFORMATION
  Report Type: Spontaneous
  Country: FI (occurrence: FI)
  Receive Date: 20220930
  Receipt Date: 20220930
  Transmission Date: 20221027
  Serious: Yes (Other)
  Sender: FDA-Public Use
  Company Number: FI-GLAXOSMITHKLINE-FI2022GSK139772

PATIENT

DRUGS (29)
  1. BUPROPION HYDROCHLORIDE [Suspect]
     Active Substance: BUPROPION HYDROCHLORIDE
     Indication: Product used for unknown indication
     Dosage: UNK
  2. HYDROXYZINE [Suspect]
     Active Substance: HYDROXYZINE HYDROCHLORIDE
     Indication: Product used for unknown indication
     Dosage: UNK
  3. ZOPICLONE [Suspect]
     Active Substance: ZOPICLONE
     Indication: Product used for unknown indication
     Dosage: UNK
  4. DIAZEPAM [Suspect]
     Active Substance: DIAZEPAM
     Indication: Product used for unknown indication
     Dosage: UNK
  5. LORAZEPAM [Suspect]
     Active Substance: LORAZEPAM
     Indication: Product used for unknown indication
     Dosage: UNK
  6. MOCLOBEMIDE [Suspect]
     Active Substance: MOCLOBEMIDE
     Indication: Product used for unknown indication
     Dosage: UNK
  7. ZOLPIDEM [Suspect]
     Active Substance: ZOLPIDEM TARTRATE
     Indication: Product used for unknown indication
     Dosage: UNK
  8. VENLAFAXINE [Suspect]
     Active Substance: VENLAFAXINE HYDROCHLORIDE
     Indication: Product used for unknown indication
     Dosage: UNK
  9. DULOXETINE [Suspect]
     Active Substance: DULOXETINE
     Indication: Product used for unknown indication
     Dosage: UNK
  10. CITALOPRAM [Suspect]
     Active Substance: CITALOPRAM HYDROBROMIDE
     Indication: Product used for unknown indication
     Dosage: UNK
  11. QUETIAPINE [Suspect]
     Active Substance: QUETIAPINE
     Indication: Product used for unknown indication
     Dosage: UNK
  12. OLANZAPINE [Suspect]
     Active Substance: OLANZAPINE
     Indication: Product used for unknown indication
     Dosage: UNK
  13. METHYLPHENIDATE [Suspect]
     Active Substance: METHYLPHENIDATE
     Indication: Product used for unknown indication
     Dosage: UNK
  14. PREGABALIN [Suspect]
     Active Substance: PREGABALIN
     Indication: Product used for unknown indication
     Dosage: UNK
  15. DOXEPIN [Suspect]
     Active Substance: DOXEPIN
     Indication: Product used for unknown indication
     Dosage: UNK
  16. ESCITALOPRAM [Suspect]
     Active Substance: ESCITALOPRAM OXALATE
     Indication: Product used for unknown indication
     Dosage: UNK
  17. MIANSERIN [Suspect]
     Active Substance: MIANSERIN
     Indication: Product used for unknown indication
     Dosage: UNK
  18. MIRTAZAPINE [Suspect]
     Active Substance: MIRTAZAPINE
     Indication: Product used for unknown indication
     Dosage: UNK
  19. FLUPENTIXOL [Suspect]
     Active Substance: FLUPENTIXOL
     Indication: Product used for unknown indication
     Dosage: UNK
  20. SULPIRIDE [Suspect]
     Active Substance: SULPIRIDE
     Indication: Product used for unknown indication
     Dosage: UNK
  21. ALPRAZOLAM [Suspect]
     Active Substance: ALPRAZOLAM
     Indication: Product used for unknown indication
     Dosage: UNK
  22. CLONAZEPAM [Suspect]
     Active Substance: CLONAZEPAM
     Indication: Product used for unknown indication
     Dosage: UNK
  23. MIDAZOLAM [Suspect]
     Active Substance: MIDAZOLAM
     Indication: Product used for unknown indication
     Dosage: UNK
  24. OXAZEPAM [Suspect]
     Active Substance: OXAZEPAM
     Indication: Product used for unknown indication
     Dosage: 15 MG, 3-4 TIMES DAILY
  25. TEMAZEPAM [Suspect]
     Active Substance: TEMAZEPAM
     Indication: Product used for unknown indication
     Dosage: UNK
  26. TRIAZOLAM [Suspect]
     Active Substance: TRIAZOLAM
     Indication: Product used for unknown indication
     Dosage: UNK
  27. MELATONIN [Suspect]
     Active Substance: MELATONIN
     Indication: Product used for unknown indication
     Dosage: UNK
  28. DISULFIRAM [Suspect]
     Active Substance: DISULFIRAM
     Indication: Alcohol use disorder
     Dosage: UNK
  29. VORTIOXETINE [Suspect]
     Active Substance: VORTIOXETINE
     Indication: Product used for unknown indication
     Dosage: UNK

REACTIONS (15)
  - Suicidal ideation [Unknown]
  - Drug abuse [Unknown]
  - Mental disorder [Unknown]
  - Reduced facial expression [Unknown]
  - Bradyphrenia [Unknown]
  - Disturbance in attention [Unknown]
  - Fear [Unknown]
  - Dissociation [Unknown]
  - Hypokinesia [Unknown]
  - Thinking abnormal [Unknown]
  - Depressed mood [Unknown]
  - Insomnia [Unknown]
  - Decreased appetite [Unknown]
  - Anxiety [Unknown]
  - Drug ineffective [Unknown]
